FAERS Safety Report 6601981-8 (Version None)
Quarter: 2010Q1

REPORT INFORMATION
  Report Type: 
  Country: None (occurrence: None)
  Receive Date: 20100225
  Receipt Date: 20100216
  Transmission Date: 20100710
  Serious: Yes (Hospitalization, Other)
  Sender: FDA-Public Use
  Company Number: US-PFIZER INC-2010013153

PATIENT
  Sex: Female
  Weight: 63.502 kg

DRUGS (5)
  1. LIPITOR [Suspect]
     Indication: HYPERLIPIDAEMIA
     Dosage: 10 MG, 1X/DAY
     Dates: start: 20060101, end: 20080901
  2. LIPITOR [Suspect]
     Indication: CORONARY ARTERY DISEASE
  3. TOPROL-XL [Concomitant]
     Dosage: UNK
  4. ISORBID [Concomitant]
     Dosage: UNK
  5. NITROGLYCERIN [Concomitant]
     Dosage: UNK
     Route: 062

REACTIONS (5)
  - ALANINE AMINOTRANSFERASE INCREASED [None]
  - ASPARTATE AMINOTRANSFERASE INCREASED [None]
  - FATIGUE [None]
  - MYOCARDIAL INFARCTION [None]
  - RHABDOMYOLYSIS [None]
